FAERS Safety Report 4752804-3 (Version None)
Quarter: 2005Q3

REPORT INFORMATION
  Report Type: 
  Country: None (occurrence: None)
  Receive Date: 20050823
  Receipt Date: 20050422
  Transmission Date: 20060218
  Serious: Yes (Hospitalization)
  Sender: FDA-Public Use
  Company Number: 2005050446

PATIENT
  Age: 82 Year
  Sex: Female

DRUGS (2)
  1. NORVASC [Suspect]
     Indication: HYPERTENSION
     Dosage: (1 TABLET DAILY), ORAL
     Route: 048
     Dates: start: 20050219, end: 20050305
  2. ADVIL [Suspect]
     Indication: ILL-DEFINED DISORDER

REACTIONS (1)
  - OEDEMA PERIPHERAL [None]
